FAERS Safety Report 7808308 (Version 3)
Quarter: 2013Q1

REPORT INFORMATION
  Report Type: Spontaneous
  Country: US (occurrence: US)
  Receive Date: 20110211
  Receipt Date: 20130307
  Transmission Date: 20140127
  Serious: Yes (Hospitalization)
  Sender: FDA-Public Use
  Company Number: US-BIOGENIDEC-2011BI004599

PATIENT
  Age: 43 Year
  Sex: Female

DRUGS (2)
  1. TYSABRI [Suspect]
     Indication: MULTIPLE SCLEROSIS
     Route: 042
     Dates: start: 20071001, end: 201012
  2. TYSABRI [Suspect]
     Indication: MULTIPLE SCLEROSIS
     Route: 042
     Dates: start: 201103

REACTIONS (8)
  - Road traffic accident [Recovered/Resolved]
  - Post-traumatic neck syndrome [Not Recovered/Not Resolved]
  - Tooth avulsion [Recovered/Resolved]
  - Feeling abnormal [Recovered/Resolved]
  - Migraine [Recovered/Resolved]
  - Vomiting [Recovered/Resolved]
  - Coordination abnormal [Not Recovered/Not Resolved]
  - Abasia [Not Recovered/Not Resolved]
